FAERS Safety Report 7044574-3 (Version None)
Quarter: 2010Q4

REPORT INFORMATION
  Report Type: 
  Country: None (occurrence: None)
  Receive Date: 20101014
  Receipt Date: 20101005
  Transmission Date: 20110411
  Serious: Yes (Other)
  Sender: FDA-Public Use
  Company Number: CH-SANOFI-AVENTIS-2010SA059884

PATIENT
  Age: 19 Year
  Sex: Female

DRUGS (5)
  1. RIFATER [Interacting]
     Indication: PULMONARY TUBERCULOSIS
     Dates: start: 20090606, end: 20091001
  2. RIFAMATE [Suspect]
     Indication: PULMONARY TUBERCULOSIS
     Dates: start: 20091001, end: 20091201
  3. CERAZETTE [Interacting]
     Dates: start: 20090501
  4. MYAMBUTOL [Suspect]
     Indication: PULMONARY TUBERCULOSIS
     Dates: start: 20090606, end: 20091001
  5. PYRIDOXINE HYDROCHLORIDE [Suspect]
     Dates: start: 20090606

REACTIONS (5)
  - CAESAREAN SECTION [None]
  - DRUG EXPOSURE DURING PREGNANCY [None]
  - DRUG INEFFECTIVE [None]
  - DRUG INTERACTION [None]
  - UNINTENDED PREGNANCY [None]
